FAERS Safety Report 19431217 (Version 1)
Quarter: 2021Q2

REPORT INFORMATION
  Report Type: Spontaneous
  Country: SE (occurrence: SE)
  Receive Date: 20210617
  Receipt Date: 20210617
  Transmission Date: 20210717
  Serious: Yes (Other)
  Sender: FDA-Public Use
  Company Number: SE-VIIV HEALTHCARE LIMITED-SE2021131104

PATIENT
  Age: 64 Year
  Sex: Female

DRUGS (3)
  1. ATACAND [Concomitant]
     Active Substance: CANDESARTAN CILEXETIL
     Indication: PRODUCT USED FOR UNKNOWN INDICATION
     Dosage: UNK
     Route: 065
     Dates: start: 1995
  2. TRIUMEQ [Suspect]
     Active Substance: ABACAVIR SULFATE\DOLUTEGRAVIR SODIUM\LAMIVUDINE
     Indication: TRANSMISSION OF AN INFECTIOUS AGENT VIA PRODUCT
     Dosage: UNK
     Route: 065
  3. TRIUMEQ [Suspect]
     Active Substance: ABACAVIR SULFATE\DOLUTEGRAVIR SODIUM\LAMIVUDINE
     Indication: HIV INFECTION
     Dosage: 1 DF, QD
     Route: 065
     Dates: start: 2019, end: 20200405

REACTIONS (8)
  - Heart rate increased [Recovering/Resolving]
  - Renal neoplasm [Recovering/Resolving]
  - Diabetes mellitus [Recovering/Resolving]
  - Rash papular [Recovering/Resolving]
  - Gastrointestinal inflammation [Recovering/Resolving]
  - Nephrolithiasis [Recovering/Resolving]
  - Bronchitis [Recovering/Resolving]
  - Blood pressure fluctuation [Recovering/Resolving]

NARRATIVE: CASE EVENT DATE: 2019
